FAERS Safety Report 8111619-9 (Version None)
Quarter: 2012Q1

REPORT INFORMATION
  Report Type: 
  Country: None (occurrence: None)
  Receive Date: 20120202
  Receipt Date: 20120202
  Transmission Date: 20120608
  Serious: Yes (Hospitalization)
  Sender: FDA-Public Use
  Company Number: None

PATIENT
  Sex: Male
  Weight: 89.2 kg

DRUGS (4)
  1. ELOXATIN [Suspect]
     Dosage: 180 MG
     Dates: end: 20120118
  2. FLUOROURACIL [Suspect]
     Dosage: 850 MG
     Dates: end: 20120118
  3. LEUCOVORIN CALCIUM [Suspect]
     Dosage: 850 MG
     Dates: end: 20120118
  4. BEVACIZUMAB (RHUMAB VEGF) [Suspect]
     Dosage: 430 MG
     Dates: end: 20120118

REACTIONS (7)
  - LUNG CONSOLIDATION [None]
  - PNEUMONIA [None]
  - ATELECTASIS [None]
  - CHEST PAIN [None]
  - PLEURAL EFFUSION [None]
  - PULMONARY EMBOLISM [None]
  - BLOOD PRESSURE INCREASED [None]
